FAERS Safety Report 6648909-2 (Version None)
Quarter: 2010Q1

REPORT INFORMATION
  Report Type: 
  Country: None (occurrence: None)
  Receive Date: 20100319
  Receipt Date: 20100222
  Transmission Date: 20100710
  Serious: Yes (Other)
  Sender: FDA-Public Use
  Company Number: 2110898-2010-00027

PATIENT
  Age: 84 Year
  Sex: Female

DRUGS (2)
  1. 3M ESPE PERIOMED 0.63% STANNOUS FLORIDE ORAL RINSE CONCENTRATE, CINNAM [Suspect]
     Dosage: TOPICAL, ORAL
     Route: 061
     Dates: start: 20100120, end: 20100220
  2. VITAMINS [Concomitant]

REACTIONS (2)
  - AGEUSIA [None]
  - ANOSMIA [None]
